FAERS Safety Report 16405012 (Version 1)
Quarter: 2019Q2

REPORT INFORMATION
  Report Type: Report from Study
  Country: ES (occurrence: ES)
  Receive Date: 20190607
  Receipt Date: 20190607
  Transmission Date: 20190711
  Serious: Yes (Hospitalization)
  Sender: FDA-Public Use
  Company Number: ES-TEVA-2019-ES-1058821

PATIENT
  Age: 61 Year
  Sex: Male

DRUGS (1)
  1. NAPROXENO [Suspect]
     Active Substance: NAPROXEN
     Indication: HEADACHE
     Dates: start: 20170319, end: 20170321

REACTIONS (2)
  - Gastric ulcer haemorrhage [Recovered/Resolved]
  - Gastric ulcer [Recovering/Resolving]

NARRATIVE: CASE EVENT DATE: 20170321
